FAERS Safety Report 9528634 (Version 1)
Quarter: 2013Q3

REPORT INFORMATION
  Report Type: Spontaneous
  Country: US (occurrence: US)
  Receive Date: 20130917
  Receipt Date: 20130917
  Transmission Date: 20140515
  Serious: No
  Sender: FDA-Public Use
  Company Number: US-BANPHARM-20120191

PATIENT
  Age: 79 Year
  Sex: Female
  Weight: 61.36 kg

DRUGS (2)
  1. ZYRTEC LIQUID GELS 10 MG [Suspect]
     Indication: HYPERSENSITIVITY
     Dosage: 1 DF, QD,
     Route: 048
     Dates: start: 20120919
  2. EXFORGE 12.5 MG [Concomitant]
     Indication: HYPERTENSION
     Dosage: 1 PER DAY

REACTIONS (4)
  - Laceration [Recovering/Resolving]
  - Product package associated injury [Recovering/Resolving]
  - Product closure removal difficult [Unknown]
  - Product label issue [Unknown]
